FAERS Safety Report 4823754-9 (Version None)
Quarter: 2005Q4

REPORT INFORMATION
  Report Type: 
  Country: None (occurrence: None)
  Receive Date: 20051107
  Receipt Date: 20051101
  Transmission Date: 20060501
  Serious: Yes (Hospitalization)
  Sender: FDA-Public Use
  Company Number: 2005149509

PATIENT
  Age: 67 Year
  Sex: Female

DRUGS (6)
  1. CABERGOLINE [Suspect]
     Indication: PARKINSON'S DISEASE
     Dosage: 1 MG (1 MG, QD), ORAL
     Route: 048
  2. GRAPEFRUIT JUICE (CITRUS PARADISI FRUIT JUICE) [Suspect]
     Indication: ILL-DEFINED DISORDER
     Dosage: ORAL
     Route: 048
  3. PARLODEL [Suspect]
     Indication: ILL-DEFINED DISORDER
     Dosage: ORAL
     Route: 048
  4. SYMMETREL [Suspect]
     Indication: ILL-DEFINED DISORDER
     Dosage: ORAL
     Route: 048
     Dates: end: 20050904
  5. SELEGILINE HYDROCHLORIDE (SELEGILINE HYDROCHLORIDE) [Suspect]
     Indication: ILL-DEFINED DISORDER
     Dosage: ORAL
     Route: 048
  6. MADOPAR           (BENSERAZIDE HYDROCHLORIDE, LEVODOPA) [Concomitant]
     Route: 048

REACTIONS (5)
  - DELUSION [None]
  - FOOD INTERACTION [None]
  - HALLUCINATION [None]
  - MOVEMENT DISORDER [None]
  - RASH [None]
